FAERS Safety Report 8258357-X (Version None)
Quarter: 2012Q2

REPORT INFORMATION
  Report Type: 
  Country: None (occurrence: None)
  Receive Date: 20120404
  Receipt Date: 20120327
  Transmission Date: 20120825
  Serious: Yes (Death, Life-Threatening, Hospitalization, Other)
  Sender: FDA-Public Use
  Company Number: US-UCBSA-054212

PATIENT
  Age: 71 Year
  Sex: Female
  Weight: 63.95 kg

DRUGS (8)
  1. CIMZIA [Suspect]
     Route: 058
     Dates: start: 20111222, end: 20120101
  2. OMEPRAZOLE [Concomitant]
     Indication: GASTROOESOPHAGEAL REFLUX DISEASE
     Route: 048
     Dates: start: 20110923
  3. FOLIC ACID [Concomitant]
     Indication: VITAMIN SUPPLEMENTATION
     Route: 048
     Dates: start: 20111024
  4. CIMZIA [Suspect]
     Indication: RHEUMATOID ARTHRITIS
     Route: 058
     Dates: start: 20120101, end: 20120216
  5. NORCO [Concomitant]
     Indication: PAIN
     Dosage: DOSE PER INTAKE-10/325, FREQUENCY-1 TO 2  TABS Q 6 HOURS
     Route: 048
     Dates: start: 20110923
  6. CORTICOSTEROIDS [Concomitant]
     Dates: start: 20110923
  7. METHOTREXATE [Concomitant]
     Indication: RHEUMATOID ARTHRITIS
     Dosage: DOSE PER INTAKE-6 TAB WEEKLY
     Route: 048
     Dates: start: 20110901, end: 20120201
  8. MOBIC [Concomitant]
     Indication: PAIN
     Route: 048
     Dates: start: 20120130, end: 20120216

REACTIONS (5)
  - DRUG INEFFECTIVE [None]
  - DEATH [None]
  - METASTASES TO LIVER [None]
  - SMALL CELL LUNG CANCER STAGE UNSPECIFIED [None]
  - METASTASES TO CENTRAL NERVOUS SYSTEM [None]
